FAERS Safety Report 23759385 (Version 1)
Quarter: 2024Q2

REPORT INFORMATION
  Report Type: Spontaneous
  Country: US (occurrence: None)
  Receive Date: 20240418
  Receipt Date: 20240418
  Transmission Date: 20240715
  Serious: No
  Sender: FDA-Public Use
  Company Number: US-ROCHE-3500025

PATIENT
  Sex: Male

DRUGS (1)
  1. ESBRIET [Suspect]
     Active Substance: PIRFENIDONE
     Indication: Pulmonary fibrosis
     Dosage: TAKE 1 TABLET 3 TIMES DAILY X1 WEEK, THEN 2 TABLETS 3 TIMES A DAILY X 1 WEEK, THEN 3 TABLETS 3 TIMES
     Route: 048
     Dates: start: 20240124

REACTIONS (1)
  - Diarrhoea [Not Recovered/Not Resolved]
